FAERS Safety Report 8767526 (Version 2)
Quarter: 2012Q4

REPORT INFORMATION
  Report Type: 
  Country: AU (occurrence: AU)
  Receive Date: 20120904
  Receipt Date: 20121010
  Transmission Date: 20130627
  Serious: No
  Sender: FDA-Public Use
  Company Number: AU-ACTELION-A-CH2012-70501

PATIENT
  Age: 35 Year
  Sex: Male
  Weight: 63 kg

DRUGS (1)
  1. TRACLEER [Suspect]
     Indication: PULMONARY ARTERIAL HYPERTENSION
     Dosage: 125 mg, bid
     Route: 048
     Dates: start: 20101213

REACTIONS (2)
  - Pregnancy of partner [Unknown]
  - Live birth [Unknown]
